FAERS Safety Report 23614785 (Version 3)
Quarter: 2025Q2

REPORT INFORMATION
  Report Type: Report from Study
  Country: US (occurrence: US)
  Receive Date: 20240311
  Receipt Date: 20250606
  Transmission Date: 20250716
  Serious: Yes (Other)
  Sender: ABBVIE
  Company Number: US-ABBVIE-5496736

PATIENT
  Age: 69 Year
  Sex: Female

DRUGS (3)
  1. SKYRIZI [Suspect]
     Active Substance: RISANKIZUMAB-RZAA
     Indication: Psoriatic arthropathy
     Route: 058
     Dates: start: 20230501
  2. SKYRIZI [Suspect]
     Active Substance: RISANKIZUMAB-RZAA
     Route: 058
     Dates: start: 20231102
  3. SKYRIZI [Suspect]
     Active Substance: RISANKIZUMAB-RZAA
     Route: 058
     Dates: start: 20230520

REACTIONS (17)
  - Blindness unilateral [Unknown]
  - Muscle strain [Recovering/Resolving]
  - Skin exfoliation [Recovering/Resolving]
  - Arthralgia [Not Recovered/Not Resolved]
  - Vertigo [Recovering/Resolving]
  - Groin pain [Not Recovered/Not Resolved]
  - Pain [Unknown]
  - Arthropathy [Recovering/Resolving]
  - Chondropathy [Recovering/Resolving]
  - Cerebrovascular accident [Unknown]
  - Hip arthroplasty [Recovering/Resolving]
  - Paraesthesia [Recovering/Resolving]
  - Burning sensation [Recovering/Resolving]
  - Hypoaesthesia [Recovering/Resolving]
  - Grip strength decreased [Unknown]
  - Insomnia [Unknown]
  - Nerve compression [Recovering/Resolving]

NARRATIVE: CASE EVENT DATE: 20230101
